FAERS Safety Report 11857000 (Version 2)
Quarter: 2016Q1

REPORT INFORMATION
  Report Type: Report from Study
  Country: US (occurrence: US)
  Receive Date: 20151221
  Receipt Date: 20160205
  Transmission Date: 20160526
  Serious: Yes (Hospitalization)
  Sender: FDA-Public Use
  Company Number: US-BIOGEN-2015BI115733

PATIENT
  Age: 12 Month
  Sex: Male
  Weight: 9.8 kg

DRUGS (11)
  1. RFIXFC [Suspect]
     Active Substance: EFTRENONACOG ALFA
     Route: 042
     Dates: start: 20150823, end: 20150823
  2. RFIXFC [Suspect]
     Active Substance: EFTRENONACOG ALFA
     Route: 042
     Dates: start: 20150818, end: 20150818
  3. AMICAR [Concomitant]
     Active Substance: AMINOCAPROIC ACID
     Route: 048
  4. POLY-VITAMIN/IRON [Concomitant]
     Route: 048
  5. RFIXFC [Suspect]
     Active Substance: EFTRENONACOG ALFA
     Route: 042
     Dates: start: 20150818, end: 20150818
  6. RFIXFC [Suspect]
     Active Substance: EFTRENONACOG ALFA
     Route: 042
     Dates: start: 20150821, end: 20150821
  7. RFIXFC [Suspect]
     Active Substance: EFTRENONACOG ALFA
     Indication: HAEMOPHILIA
     Route: 042
     Dates: start: 20150602
  8. AMICAR [Concomitant]
     Active Substance: AMINOCAPROIC ACID
     Indication: FACTOR IX DEFICIENCY
     Route: 048
     Dates: start: 20150811, end: 20150812
  9. RFIXFC [Suspect]
     Active Substance: EFTRENONACOG ALFA
     Route: 042
     Dates: start: 20150819, end: 20150819
  10. RFIXFC [Suspect]
     Active Substance: EFTRENONACOG ALFA
     Route: 042
     Dates: start: 20150819, end: 20150819
  11. RFIXFC [Suspect]
     Active Substance: EFTRENONACOG ALFA
     Route: 042
     Dates: start: 20150820, end: 20150820

REACTIONS (3)
  - Poor venous access [Recovered/Resolved]
  - Phimosis [Recovered/Resolved]
  - Prepuce redundant [Recovered/Resolved]

NARRATIVE: CASE EVENT DATE: 20150818
